FAERS Safety Report 7197335-9 (Version None)
Quarter: 2010Q4

REPORT INFORMATION
  Report Type: 
  Country: None (occurrence: None)
  Receive Date: 20101213
  Receipt Date: 20101207
  Transmission Date: 20110411
  Serious: Yes (Hospitalization)
  Sender: FDA-Public Use
  Company Number: 2010SP060824

PATIENT
  Age: 58 Year
  Sex: Female
  Weight: 87 kg

DRUGS (7)
  1. VIRAFERONPEG [Suspect]
     Indication: HEPATITIS C
     Dosage: 80 MCG;QW;SC
     Route: 058
     Dates: start: 20091201
  2. REBETOL [Suspect]
     Indication: HEPATITIS C
     Dosage: 1200 MG;QD;PO
     Route: 048
     Dates: start: 20091201
  3. LODOZ [Concomitant]
  4. DOLIPRANE [Concomitant]
  5. TEMESTA [Concomitant]
  6. THERALENE [Concomitant]
  7. TRAMADOL HCL [Concomitant]

REACTIONS (3)
  - MEDIASTINAL DISORDER [None]
  - PULMONARY TUBERCULOSIS [None]
  - TUBERCULOSIS [None]
